FAERS Safety Report 19139876 (Version 1)
Quarter: 2021Q2

REPORT INFORMATION
  Report Type: Spontaneous
  Country: GB (occurrence: GB)
  Receive Date: 20210415
  Receipt Date: 20210415
  Transmission Date: 20210717
  Serious: Yes (Other)
  Sender: FDA-Public Use
  Company Number: GB-TEVA-2021-GB-1890540

PATIENT
  Age: 49 Year
  Sex: Female

DRUGS (2)
  1. LEVOTHYROXINE. [Suspect]
     Active Substance: LEVOTHYROXINE
     Indication: HYPOTHYROIDISM
     Dosage: 100 MICROGRAM DAILY; STRENGTH 100 MCG; ;
     Route: 065
     Dates: start: 2008
  2. LEVOTHYROXINE. [Suspect]
     Active Substance: LEVOTHYROXINE
     Dosage: 100 MILLIGRAM DAILY;
     Route: 065
     Dates: start: 2017, end: 20210218

REACTIONS (10)
  - Abdominal distension [Recovering/Resolving]
  - Micturition urgency [Recovering/Resolving]
  - Drug ineffective [Unknown]
  - Menstruation irregular [Recovering/Resolving]
  - Product physical issue [Unknown]
  - Weight increased [Recovering/Resolving]
  - Onychoclasis [Recovering/Resolving]
  - Product solubility abnormal [Unknown]
  - Skin disorder [Recovering/Resolving]
  - Dry skin [Recovering/Resolving]

NARRATIVE: CASE EVENT DATE: 202009
